FAERS Safety Report 15204755 (Version 41)
Quarter: 2025Q1

REPORT INFORMATION
  Report Type: Report from Study
  Country: US (occurrence: US)
  Receive Date: 20180726
  Receipt Date: 20250324
  Transmission Date: 20250409
  Serious: Yes (Hospitalization, Other)
  Sender: TAKEDA
  Company Number: US-SHIRE-US201826554

PATIENT
  Age: 52 Year
  Sex: Female
  Weight: 69.841 kg

DRUGS (60)
  1. HUMAN IMMUNOGLOBULIN G [Suspect]
     Active Substance: HUMAN IMMUNOGLOBULIN G
     Indication: Immunodeficiency common variable
     Dosage: 16 GRAM, 1/WEEK
     Dates: start: 20140123
  2. HUMAN IMMUNOGLOBULIN G [Suspect]
     Active Substance: HUMAN IMMUNOGLOBULIN G
     Indication: Primary immunodeficiency syndrome
     Dosage: 16 GRAM, 1/WEEK
     Dates: start: 20170315
  3. HUMAN IMMUNOGLOBULIN G [Suspect]
     Active Substance: HUMAN IMMUNOGLOBULIN G
     Dosage: 16 GRAM, 1/WEEK
     Dates: start: 20170322
  4. HUMAN IMMUNOGLOBULIN G [Suspect]
     Active Substance: HUMAN IMMUNOGLOBULIN G
     Dosage: 16 GRAM, 1/WEEK
  5. HUMAN IMMUNOGLOBULIN G [Suspect]
     Active Substance: HUMAN IMMUNOGLOBULIN G
     Dosage: 16 GRAM, 1/WEEK
  6. PREMARIN [Suspect]
     Active Substance: ESTROGENS, CONJUGATED
     Indication: Product used for unknown indication
  7. MOUNJARO [Suspect]
     Active Substance: TIRZEPATIDE
     Indication: Product used for unknown indication
  8. BIOTIN [Suspect]
     Active Substance: BIOTIN
     Indication: Product used for unknown indication
  9. ACETAMINOPHEN [Concomitant]
     Active Substance: ACETAMINOPHEN
  10. DIPHENHYDRAMINE [Concomitant]
     Active Substance: DIPHENHYDRAMINE
  11. LIDOCAINE [Concomitant]
     Active Substance: LIDOCAINE
  12. EPINEPHRINE [Concomitant]
     Active Substance: EPINEPHRINE
  13. HALCION [Concomitant]
     Active Substance: TRIAZOLAM
  14. PROVENTIL [Concomitant]
     Active Substance: ALBUTEROL
  15. VALTREX [Concomitant]
     Active Substance: VALACYCLOVIR HYDROCHLORIDE
  16. ALBUTEROL [Concomitant]
     Active Substance: ALBUTEROL
  17. OFLOXACIN [Concomitant]
     Active Substance: OFLOXACIN
  18. DIFLUCAN [Concomitant]
     Active Substance: FLUCONAZOLE
  19. KLONOPIN [Concomitant]
     Active Substance: CLONAZEPAM
  20. SINGULAIR [Concomitant]
     Active Substance: MONTELUKAST SODIUM
  21. DIOVAN [Concomitant]
     Active Substance: VALSARTAN
  22. FISH OIL [Concomitant]
     Active Substance: FISH OIL
  23. GABAPENTIN [Concomitant]
     Active Substance: GABAPENTIN
  24. MUPIROCIN [Concomitant]
     Active Substance: MUPIROCIN
  25. FLONASE [Concomitant]
     Active Substance: FLUTICASONE PROPIONATE
  26. DICYCLOMINE HYDROCHLORIDE [Concomitant]
     Active Substance: DICYCLOMINE HYDROCHLORIDE
  27. VITAMIN C [Concomitant]
     Active Substance: ASCORBIC ACID
  28. MELATONIN [Concomitant]
     Active Substance: MELATONIN
  29. VALERIAN [Concomitant]
     Active Substance: VALERIAN
  30. AMBIEN [Concomitant]
     Active Substance: ZOLPIDEM TARTRATE
  31. PATADAY [Concomitant]
     Active Substance: OLOPATADINE HYDROCHLORIDE
  32. ACYCLOVIR [Concomitant]
     Active Substance: ACYCLOVIR
  33. BREO ELLIPTA [Concomitant]
     Active Substance: FLUTICASONE FUROATE\VILANTEROL TRIFENATATE
  34. VITAMIN B12 [Concomitant]
     Active Substance: CYANOCOBALAMIN
  35. FAMOTIDINE [Concomitant]
     Active Substance: FAMOTIDINE
  36. PAROXETINE [Concomitant]
     Active Substance: PAROXETINE
  37. VITAMIN D3 [Concomitant]
     Active Substance: CHOLECALCIFEROL
  38. ZINC [Concomitant]
     Active Substance: ZINC
  39. LOSARTAN POTASSIUM [Concomitant]
     Active Substance: LOSARTAN POTASSIUM
  40. OMEPRAZOLE [Concomitant]
     Active Substance: OMEPRAZOLE
  41. MODERNA COVID-19 VACCINE [Concomitant]
     Active Substance: ELASOMERAN
  42. POTASSIUM [Concomitant]
     Active Substance: POTASSIUM
  43. VITAMIN B [Concomitant]
     Active Substance: VITAMIN B
  44. HERBALS [Concomitant]
     Active Substance: HERBALS
  45. PFIZER-BIONTECH COVID-19 VACCINE [Concomitant]
     Active Substance: TOZINAMERAN
  46. PAROXETINE HYDROCHLORIDE [Concomitant]
     Active Substance: PAROXETINE HYDROCHLORIDE
  47. FLUTICASONE PROPIONATE [Concomitant]
     Active Substance: FLUTICASONE PROPIONATE
  48. ALBUTEROL SULFATE [Concomitant]
     Active Substance: ALBUTEROL SULFATE
  49. METFORMIN HYDROCHLORIDE [Concomitant]
     Active Substance: METFORMIN HYDROCHLORIDE
  50. OXYCODONE HYDROCHLORIDE [Concomitant]
     Active Substance: OXYCODONE HYDROCHLORIDE
  51. PROAIR HFA [Concomitant]
     Active Substance: ALBUTEROL SULFATE
  52. CARAFATE [Concomitant]
     Active Substance: SUCRALFATE
  53. OXYGEN [Concomitant]
     Active Substance: OXYGEN
  54. ONDANSETRON [Concomitant]
     Active Substance: ONDANSETRON
  55. DIPHENHYDRAMINE HYDROCHLORIDE [Concomitant]
     Active Substance: DIPHENHYDRAMINE HYDROCHLORIDE
  56. ZINC GLUCONATE [Concomitant]
     Active Substance: ZINC GLUCONATE
  57. Zinc lozenges [Concomitant]
  58. PEPCID [Concomitant]
     Active Substance: FAMOTIDINE
  59. ATORVASTATIN [Concomitant]
     Active Substance: ATORVASTATIN
  60. METFORMIN [Concomitant]
     Active Substance: METFORMIN HYDROCHLORIDE

REACTIONS (52)
  - Pulmonary mass [Unknown]
  - Pneumonia [Recovering/Resolving]
  - Sepsis [Unknown]
  - Joint swelling [Unknown]
  - Lumbar vertebral fracture [Unknown]
  - Atypical pneumonia [Unknown]
  - Stress [Unknown]
  - Headache [Unknown]
  - Malaise [Recovering/Resolving]
  - Nausea [Unknown]
  - Pharyngitis streptococcal [Unknown]
  - Viral infection [Unknown]
  - Weight decreased [Unknown]
  - Foot fracture [Unknown]
  - Cystitis [Recovered/Resolved]
  - Fungal infection [Recovered/Resolved]
  - Bladder pain [Recovered/Resolved]
  - Pollakiuria [Recovered/Resolved]
  - Seasonal allergy [Unknown]
  - Fall [Unknown]
  - Gait inability [Recovering/Resolving]
  - COVID-19 [Unknown]
  - Gastrointestinal disorder [Unknown]
  - Ear infection [Unknown]
  - Gait disturbance [Unknown]
  - Depression [Unknown]
  - Urinary tract infection [Unknown]
  - Skin infection [Unknown]
  - Catheter site pruritus [Unknown]
  - Injury associated with device [Unknown]
  - Infected cyst [Unknown]
  - Renal disorder [Unknown]
  - Upper respiratory tract infection [Unknown]
  - Sinusitis [Unknown]
  - Bronchitis [Unknown]
  - Weight fluctuation [Unknown]
  - Herpes zoster [Unknown]
  - Dyspepsia [Unknown]
  - Infusion site bruising [Unknown]
  - Conjunctivitis [Unknown]
  - Throat irritation [Unknown]
  - Inappropriate schedule of product administration [Unknown]
  - Infection [Unknown]
  - Oxygen saturation decreased [Unknown]
  - Infusion site mass [Unknown]
  - Infusion site discharge [Unknown]
  - Somnolence [Unknown]
  - Cough [Unknown]
  - Burning sensation [Unknown]
  - Infusion site pruritus [Unknown]
  - Myalgia [Unknown]
  - Fatigue [Unknown]

NARRATIVE: CASE EVENT DATE: 20180601
